FAERS Safety Report 4605795-X (Version None)
Quarter: 2005Q1

REPORT INFORMATION
  Report Type: 
  Country: None (occurrence: None)
  Receive Date: 20050115
  Receipt Date: 20040818
  Transmission Date: 20050727
  Serious: Yes (Hospitalization)
  Sender: FDA-Public Use
  Company Number: A03200402812

PATIENT
  Age: 44 Year
  Sex: Female
  Weight: 63.5036 kg

DRUGS (2)
  1. AMBIEN [Suspect]
     Indication: SLEEP DISORDER
     Dosage: 1 TO 14 TABLETS A NIGHT; ORAL
     Route: 048
     Dates: start: 19980101, end: 20030101
  2. VALPROATE SODIUM [Concomitant]

REACTIONS (6)
  - ANXIETY [None]
  - DRUG ABUSER [None]
  - DRUG DEPENDENCE [None]
  - DRUG WITHDRAWAL CONVULSIONS [None]
  - HALLUCINATION [None]
  - LOSS OF CONSCIOUSNESS [None]
